FAERS Safety Report 6806035-3 (Version None)
Quarter: 2010Q2

REPORT INFORMATION
  Report Type: 
  Country: None (occurrence: None)
  Receive Date: 20100629
  Receipt Date: 20080507
  Transmission Date: 20101027
  Serious: No
  Sender: FDA-Public Use
  Company Number: US-PFIZER INC-2007099478

PATIENT
  Age: 17 Year
  Sex: Male

DRUGS (2)
  1. CLEOCIN T [Suspect]
     Indication: ACNE
     Route: 061
     Dates: start: 20070829, end: 20071101
  2. RETIN-A [Concomitant]

REACTIONS (1)
  - DRUG INEFFECTIVE [None]
